FAERS Safety Report 11020168 (Version 1)
Quarter: 2015Q2

REPORT INFORMATION
  Report Type: Spontaneous
  Country: IT (occurrence: IT)
  Receive Date: 20150413
  Receipt Date: 20150413
  Transmission Date: 20150821
  Serious: Yes (Death, Other)
  Sender: FDA-Public Use
  Company Number: IT-JNJFOC-20150403926

PATIENT

DRUGS (32)
  1. CETIRIZINE [Suspect]
     Active Substance: CETIRIZINE HYDROCHLORIDE
     Indication: ANTIALLERGIC THERAPY
     Route: 065
  2. AZELASTINE [Suspect]
     Active Substance: AZELASTINE
     Indication: ANTIALLERGIC THERAPY
     Route: 065
  3. EPINASTINE [Suspect]
     Active Substance: EPINASTINE
     Indication: ANTIALLERGIC THERAPY
     Route: 065
  4. PROMETHAZINE [Suspect]
     Active Substance: PROMETHAZINE\PROMETHAZINE HYDROCHLORIDE
     Indication: ANTIALLERGIC THERAPY
     Route: 065
  5. BROMPHENIRAMINE [Suspect]
     Active Substance: BROMPHENIRAMINE
     Indication: ANTIALLERGIC THERAPY
     Route: 065
  6. DEXBROMPHENIRAMINE [Suspect]
     Active Substance: DEXBROMPHENIRAMINE
     Indication: ANTIALLERGIC THERAPY
     Route: 065
  7. MEPYRAMINE [Suspect]
     Active Substance: PYRILAMINE
     Indication: ANTIALLERGIC THERAPY
     Route: 065
  8. THIETHYLPERAZINE [Suspect]
     Active Substance: THIETHYLPERAZINE
     Indication: ANTIALLERGIC THERAPY
     Route: 065
  9. ALIMEMAZINE [Suspect]
     Active Substance: TRIMEPRAZINE
     Indication: ANTIALLERGIC THERAPY
     Route: 065
  10. DIMETINDENE [Suspect]
     Active Substance: DIMETHINDENE
     Indication: ANTIALLERGIC THERAPY
     Route: 065
  11. RUPATADINE [Suspect]
     Active Substance: RUPATADINE
     Indication: ANTIALLERGIC THERAPY
     Route: 065
  12. CYCLIZINE [Suspect]
     Active Substance: CYCLIZINE
     Indication: ANTIALLERGIC THERAPY
     Route: 065
  13. LORATADINE. [Suspect]
     Active Substance: LORATADINE
     Indication: ANTIALLERGIC THERAPY
     Route: 065
  14. FEXOFENADINE [Suspect]
     Active Substance: FEXOFENADINE\FEXOFENADINE HYDROCHLORIDE
     Indication: ANTIALLERGIC THERAPY
     Route: 065
  15. KETOTIFEN [Suspect]
     Active Substance: KETOTIFEN
     Indication: ANTIALLERGIC THERAPY
     Route: 065
  16. TERFENADINE [Suspect]
     Active Substance: TERFENADINE
     Indication: ANTIALLERGIC THERAPY
     Route: 065
  17. CETIRIZINE [Suspect]
     Active Substance: CETIRIZINE HYDROCHLORIDE
     Route: 065
  18. CHLORCYCLIZINE [Suspect]
     Active Substance: CHLORCYCLIZINE
     Indication: ANTIALLERGIC THERAPY
     Route: 065
  19. EBASTINE [Suspect]
     Active Substance: EBASTINE
     Indication: ANTIALLERGIC THERAPY
     Route: 065
  20. LEVOCETIRIZINE [Suspect]
     Active Substance: LEVOCETIRIZINE
     Indication: ANTIALLERGIC THERAPY
     Route: 065
  21. PHENIRAMINE [Suspect]
     Active Substance: PHENIRAMINE
     Indication: ANTIALLERGIC THERAPY
     Route: 065
  22. BUCLIZINE [Suspect]
     Active Substance: BUCLIZINE
     Indication: ANTIALLERGIC THERAPY
     Route: 065
  23. CARBINOXAMINE [Suspect]
     Active Substance: CARBINOXAMINE
     Indication: ANTIALLERGIC THERAPY
     Route: 065
  24. DESLORATADINE. [Suspect]
     Active Substance: DESLORATADINE
     Indication: ANTIALLERGIC THERAPY
     Route: 065
  25. DEXCHLORPHENIRAMINE [Suspect]
     Active Substance: DEXCHLORPHENIRAMINE
     Indication: ANTIALLERGIC THERAPY
     Route: 065
  26. MECLOZINE [Suspect]
     Active Substance: MECLIZINE\MECLIZINE HYDROCHLORIDE
     Indication: ANTIALLERGIC THERAPY
     Route: 065
  27. ASTEMIZOLE [Suspect]
     Active Substance: ASTEMIZOLE
     Indication: ANTIALLERGIC THERAPY
     Route: 065
  28. CHLORPHENAMINE [Suspect]
     Active Substance: CHLORPHENIRAMINE MALEATE
     Indication: ANTIALLERGIC THERAPY
     Route: 065
  29. DIPHENHYDRAMINE [Suspect]
     Active Substance: DIPHENHYDRAMINE
     Indication: ANTIALLERGIC THERAPY
     Route: 065
  30. DOXYLAMINE [Suspect]
     Active Substance: DOXYLAMINE
     Indication: ANTIALLERGIC THERAPY
     Route: 065
  31. TRIPROLIDINE [Suspect]
     Active Substance: TRIPROLIDINE
     Indication: ANTIALLERGIC THERAPY
     Route: 065
  32. CYPROHEPTADINE. [Suspect]
     Active Substance: CYPROHEPTADINE
     Indication: ANTIALLERGIC THERAPY
     Route: 065

REACTIONS (6)
  - Cardiac arrest [Fatal]
  - Torsade de pointes [Fatal]
  - Ventricular fibrillation [Fatal]
  - Electrocardiogram QT interval abnormal [Fatal]
  - Ventricular arrhythmia [Fatal]
  - Sudden cardiac death [Fatal]
